FAERS Safety Report 5818925-9 (Version None)
Quarter: 2008Q3

REPORT INFORMATION
  Report Type: 
  Country: None (occurrence: None)
  Receive Date: 20080717
  Receipt Date: 20080706
  Transmission Date: 20090109
  Serious: Yes (Life-Threatening, Hospitalization, Other)
  Sender: FDA-Public Use
  Company Number: GXKR2008GB06306

PATIENT
  Age: 74 Year
  Sex: Female

DRUGS (15)
  1. GABAPENTIN [Suspect]
     Indication: BACK PAIN
     Dosage: 100 MG, QID, ORAL; 300 MG, TID, ORAL
     Route: 048
     Dates: end: 20080528
  2. GABAPENTIN [Suspect]
     Indication: BACK PAIN
     Dosage: 100 MG, QID, ORAL; 300 MG, TID, ORAL
     Route: 048
     Dates: start: 20080528, end: 20080602
  3. ALENDRONIC ACID [Concomitant]
  4. ASPIRIN [Concomitant]
  5. ATORVASTATIN CALCIUM [Concomitant]
  6. ATROVENT [Concomitant]
  7. BECLOMETHASONE DIPROPIONATE [Concomitant]
  8. CIPROFLOXACIN [Concomitant]
  9. FENTANYL [Concomitant]
  10. FUROSEMIDE [Concomitant]
  11. LEVOTHYROXINE SODIUM [Concomitant]
  12. PREDNISONE [Concomitant]
  13. SALBUTAMOL (SALBUTAMOL) [Concomitant]
  14. SALMETEROL (SALMETEROL) [Concomitant]
  15. THEOPHYLLINE [Concomitant]

REACTIONS (3)
  - ESCHERICHIA SEPSIS [None]
  - NEUTROPENIA [None]
  - WHITE BLOOD CELL COUNT DECREASED [None]
